FAERS Safety Report 22202598 (Version 4)
Quarter: 2023Q4

REPORT INFORMATION
  Report Type: Report from Study
  Country: US (occurrence: US)
  Receive Date: 20230412
  Receipt Date: 20231109
  Transmission Date: 20240110
  Serious: Yes (Other)
  Sender: FDA-Public Use
  Company Number: US-UCBSA-2023016954

PATIENT
  Sex: Female
  Weight: 54.422 kg

DRUGS (25)
  1. FINTEPLA [Suspect]
     Active Substance: FENFLURAMINE
     Indication: Severe myoclonic epilepsy of infancy
     Dosage: 6 MILLILITER, 2X/DAY (BID)
     Route: 048
     Dates: start: 20230130
  2. FINTEPLA [Suspect]
     Active Substance: FENFLURAMINE
     Indication: Lennox-Gastaut syndrome
     Dosage: 6 MILLILITER, 2X/DAY (BID)
     Route: 048
     Dates: start: 20230131
  3. FINTEPLA [Suspect]
     Active Substance: FENFLURAMINE
     Indication: Seizure
     Dosage: 6 MILLILITER, 2X/DAY (BID)
     Route: 048
     Dates: start: 20230103
  4. FINTEPLA [Suspect]
     Active Substance: FENFLURAMINE
     Dosage: 6 MILLILITER, 2X/DAY (BID)
     Route: 048
  5. FINTEPLA [Suspect]
     Active Substance: FENFLURAMINE
     Dosage: 6 MILLILITER, 2X/DAY (BID)
     Route: 048
  6. FINTEPLA [Suspect]
     Active Substance: FENFLURAMINE
     Dosage: 6 MILLILITER, 2X/DAY (BID)
     Route: 048
  7. FINTEPLA [Suspect]
     Active Substance: FENFLURAMINE
     Dosage: 6 MILLILITER, 2X/DAY (BID)
     Route: 048
  8. FINTEPLA [Suspect]
     Active Substance: FENFLURAMINE
     Dosage: 6 MILLILITER, 2X/DAY (BID)
     Route: 048
  9. FINTEPLA [Suspect]
     Active Substance: FENFLURAMINE
     Dosage: 6 MILLILITER, 2X/DAY (BID)
     Route: 048
     Dates: start: 2023
  10. KEPPRA [Concomitant]
     Active Substance: LEVETIRACETAM
     Indication: Product used for unknown indication
     Dosage: 500 MILLIGRAM, 2X/DAY (BID)
  11. KEPPRA [Concomitant]
     Active Substance: LEVETIRACETAM
     Dosage: 2000 MILLIGRAM, 2X/DAY (BID),(62 MG/KG/DAY)
  12. TYLENOL [Concomitant]
     Active Substance: ACETAMINOPHEN
     Indication: Product used for unknown indication
     Dosage: 325 MILLIGRAM
  13. TYLENOL [Concomitant]
     Active Substance: ACETAMINOPHEN
     Dosage: 650 MILLIGRAM, AS NEEDED (PRN)
     Route: 048
  14. CLOBAZAM [Concomitant]
     Active Substance: CLOBAZAM
     Indication: Product used for unknown indication
     Dosage: 10 MILLIGRAM, 2X/DAY (BID),(0.9 MG/KG/DAY)
  15. CLOBAZAM [Concomitant]
     Active Substance: CLOBAZAM
     Dosage: 15 MILLIGRAM, 2X/DAY (BID)
  16. CLOBAZAM [Concomitant]
     Active Substance: CLOBAZAM
     Dosage: 30 MILLIGRAM, 2X/DAY (BID)
  17. VALIUM [Concomitant]
     Active Substance: DIAZEPAM
     Indication: Product used for unknown indication
     Dosage: 2 MILLIGRAM, 3X/DAY (TID)
  18. VALIUM [Concomitant]
     Active Substance: DIAZEPAM
     Dosage: 2 MILLIGRAM, 2X/DAY (BID)
  19. VALIUM [Concomitant]
     Active Substance: DIAZEPAM
     Dosage: 2 MILLIGRAM, ONCE DAILY (QD)
  20. MELATONIN [Concomitant]
     Active Substance: MELATONIN
     Indication: Product used for unknown indication
     Dosage: 1 MILLIGRAM
  21. MELATONIN [Concomitant]
     Active Substance: MELATONIN
     Dosage: 2-3 MG BY MOUTH NIGHTLY
  22. NAYZILAM [Concomitant]
     Active Substance: MIDAZOLAM
     Indication: Product used for unknown indication
     Dosage: 5 MG/0.1ML
  23. NAYZILAM [Concomitant]
     Active Substance: MIDAZOLAM
     Dosage: 10 MILLIGRAM
  24. MULTIVITAMIN GUMMY BEARS [Concomitant]
     Indication: Product used for unknown indication
     Dosage: TAKE 1 DOSE BY MOUTH DAILY
  25. ZONEGRAN [Concomitant]
     Active Substance: ZONISAMIDE
     Indication: Product used for unknown indication
     Dosage: 100 MILLIGRAM, 2X/DAY (BID)

REACTIONS (18)
  - Seizure [Not Recovered/Not Resolved]
  - Seizure cluster [Not Recovered/Not Resolved]
  - Autoimmune thyroiditis [Not Recovered/Not Resolved]
  - Lymphadenopathy [Not Recovered/Not Resolved]
  - Blood thyroid stimulating hormone increased [Not Recovered/Not Resolved]
  - Abdominal pain upper [Not Recovered/Not Resolved]
  - Decreased appetite [Recovered/Resolved]
  - Weight decreased [Not Recovered/Not Resolved]
  - Appetite disorder [Not Recovered/Not Resolved]
  - Thyroid mass [Not Recovered/Not Resolved]
  - Headache [Not Recovered/Not Resolved]
  - Nausea [Not Recovered/Not Resolved]
  - Nasopharyngitis [Not Recovered/Not Resolved]
  - Fatigue [Not Recovered/Not Resolved]
  - Thyroid cyst [Unknown]
  - Oropharyngeal pain [Not Recovered/Not Resolved]
  - Product dose omission issue [Unknown]
  - Drug ineffective [Unknown]

NARRATIVE: CASE EVENT DATE: 20230101
